FAERS Safety Report 26201081 (Version 2)
Quarter: 2025Q4

REPORT INFORMATION
  Report Type: Spontaneous
  Country: JP (occurrence: JP)
  Receive Date: 20251226
  Receipt Date: 20251229
  Transmission Date: 20260118
  Serious: Yes (Other)
  Sender: JOHNSON AND JOHNSON
  Company Number: JP-BAYER-2025A168390

PATIENT
  Age: 34 Year
  Sex: Female
  Weight: 74 kg

DRUGS (5)
  1. RIVAROXABAN [Suspect]
     Active Substance: RIVAROXABAN
     Indication: Deep vein thrombosis
     Dosage: 1 DF, QD
     Route: 048
  2. RIVAROXABAN [Suspect]
     Active Substance: RIVAROXABAN
     Dosage: 1 DF, QD
     Route: 048
  3. YAZ [Suspect]
     Active Substance: DROSPIRENONE\ETHINYL ESTRADIOL
     Indication: Heavy menstrual bleeding
     Dosage: CONTINUOUSLY
     Route: 048
  4. YAZ [Suspect]
     Active Substance: DROSPIRENONE\ETHINYL ESTRADIOL
     Indication: Uterine leiomyoma
     Dosage: UNK
     Route: 048
  5. RELUGOLIX [Concomitant]
     Active Substance: RELUGOLIX
     Indication: Uterine leiomyoma
     Dosage: UNK
     Route: 048

REACTIONS (5)
  - Deep vein thrombosis [Not Recovered/Not Resolved]
  - Pulmonary embolism [Recovering/Resolving]
  - Intermenstrual bleeding [Unknown]
  - International normalised ratio increased [Unknown]
  - Activated partial thromboplastin time prolonged [Unknown]
